FAERS Safety Report 5615644-9 (Version None)
Quarter: 2008Q1

REPORT INFORMATION
  Report Type: 
  Country: None (occurrence: None)
  Receive Date: 20080206
  Receipt Date: 20080131
  Transmission Date: 20080703
  Serious: Yes (Hospitalization)
  Sender: FDA-Public Use
  Company Number: B0506637A

PATIENT
  Age: 29 Year
  Sex: Female

DRUGS (3)
  1. FROSINOR [Suspect]
     Indication: OBSESSIVE-COMPULSIVE DISORDER
     Dosage: 80MG PER DAY
     Route: 048
     Dates: start: 20060101
  2. RISPERDAL [Concomitant]
  3. DEPAKENE [Concomitant]

REACTIONS (8)
  - ABNORMAL BEHAVIOUR [None]
  - ANXIETY [None]
  - BALANCE DISORDER [None]
  - DRY MOUTH [None]
  - FEELING JITTERY [None]
  - SUICIDAL IDEATION [None]
  - SUICIDE ATTEMPT [None]
  - TREMOR [None]
